FAERS Safety Report 6222205-X (Version None)
Quarter: 2009Q2

REPORT INFORMATION
  Report Type: 
  Country: None (occurrence: None)
  Receive Date: 20090611
  Receipt Date: 20090531
  Transmission Date: 20091009
  Serious: Yes (Other)
  Sender: FDA-Public Use
  Company Number: PHHY2009DE21907

PATIENT

DRUGS (2)
  1. LEPONEX [Suspect]
     Dosage: 400 MG/DAY
     Route: 048
  2. LEPONEX [Suspect]
     Dosage: 100 MG/DAY
     Route: 048

REACTIONS (3)
  - CYSTITIS INTERSTITIAL [None]
  - DYSURIA [None]
  - HAEMATURIA [None]
